FAERS Safety Report 14907065 (Version 2)
Quarter: 2018Q3

REPORT INFORMATION
  Report Type: Spontaneous
  Country: IT (occurrence: IT)
  Receive Date: 20180517
  Receipt Date: 20180704
  Transmission Date: 20181010
  Serious: Yes (Hospitalization, Other)
  Sender: FDA-Public Use
  Company Number: IT-ROCHE-2125143

PATIENT
  Age: 67 Year
  Sex: Female
  Weight: 102 kg

DRUGS (3)
  1. PIRFENIDONE. [Suspect]
     Active Substance: PIRFENIDONE
     Indication: IDIOPATHIC PULMONARY FIBROSIS
     Dosage: MOST RECENT DOSE ON 15/AUG/2015.
     Route: 048
     Dates: start: 20150710
  2. IGROTON [Concomitant]
     Active Substance: CHLORTHALIDONE
  3. TAREG [Concomitant]
     Active Substance: VALSARTAN

REACTIONS (1)
  - Acute psychosis [Recovered/Resolved]

NARRATIVE: CASE EVENT DATE: 20150929
